FAERS Safety Report 8114818-5 (Version None)
Quarter: 2012Q1

REPORT INFORMATION
  Report Type: 
  Country: None (occurrence: None)
  Receive Date: 20120206
  Receipt Date: 20120127
  Transmission Date: 20120608
  Serious: Yes (Death)
  Sender: FDA-Public Use
  Company Number: PHHY2011PL107033

PATIENT
  Sex: Female

DRUGS (2)
  1. LETROZOLE [Suspect]
     Dosage: UNK UKN, UNK
     Dates: start: 20070212
  2. RADIOTHERAPY [Concomitant]

REACTIONS (1)
  - BREAST CANCER [None]
